FAERS Safety Report 11422352 (Version 1)
Quarter: 2015Q3

REPORT INFORMATION
  Report Type: Spontaneous
  Country: US (occurrence: US)
  Receive Date: 20150827
  Receipt Date: 20150827
  Transmission Date: 20151125
  Serious: No
  Sender: FDA-Public Use
  Company Number: US-PFIZER INC-2015248630

PATIENT
  Age: 68 Year
  Sex: Female
  Weight: 125 kg

DRUGS (6)
  1. INDOMETHACIN. [Concomitant]
     Active Substance: INDOMETHACIN
     Dosage: 75 MG, UNK
  2. XELJANZ [Suspect]
     Active Substance: TOFACITINIB CITRATE
     Indication: RHEUMATOID ARTHRITIS
     Dosage: 5 MG, 2X/DAY
     Route: 048
     Dates: start: 20150514, end: 20150806
  3. ZONISAMIDE. [Concomitant]
     Active Substance: ZONISAMIDE
     Dosage: 50 MG, UNK
  4. PREDNISONE. [Concomitant]
     Active Substance: PREDNISONE
     Dosage: 20 MG, UNK
  5. CEFUROXIME. [Concomitant]
     Active Substance: CEFUROXIME
     Dosage: 250 MG, UNK
  6. DIFLUNISAL. [Concomitant]
     Active Substance: DIFLUNISAL
     Dosage: 500 MG, UNK

REACTIONS (1)
  - Urinary tract infection [Recovered/Resolved]

NARRATIVE: CASE EVENT DATE: 20150805
